FAERS Safety Report 8559966-0 (Version None)
Quarter: 2012Q3

REPORT INFORMATION
  Report Type: 
  Country: None (occurrence: None)
  Receive Date: 20120802
  Receipt Date: 20120726
  Transmission Date: 20120928
  Serious: Yes (Other)
  Sender: FDA-Public Use
  Company Number: JP-009507513-1207JPN011024

PATIENT

DRUGS (2)
  1. REMERON [Suspect]
     Dosage: DAILY DOSAGE UNKNOWN
     Route: 048
  2. [THERAPY UNSPECIFIED] [Concomitant]
     Dosage: DAILY DOSAGE UNKNOWN
     Route: 048

REACTIONS (1)
  - BLINDNESS TRANSIENT [None]
